FAERS Safety Report 10360780 (Version 1)
Quarter: 2014Q3

REPORT INFORMATION
  Report Type: Spontaneous
  Country: FR (occurrence: FR)
  Receive Date: 20140804
  Receipt Date: 20140804
  Transmission Date: 20150326
  Serious: Yes (Hospitalization, Other)
  Sender: FDA-Public Use
  Company Number: PHHY2014FR093410

PATIENT
  Sex: Female

DRUGS (1)
  1. VANCOMYCIN SANDOZ [Suspect]
     Active Substance: VANCOMYCIN
     Indication: DRUG ADMINISTRATION ERROR
     Dosage: 1 G, ONCE/SINGLE
     Route: 042
     Dates: start: 20140618

REACTIONS (4)
  - Erythema [Unknown]
  - Wrong drug administered [Unknown]
  - Pruritus [Unknown]
  - Choking sensation [Unknown]

NARRATIVE: CASE EVENT DATE: 20140618
